FAERS Safety Report 11335620 (Version 3)
Quarter: 2015Q3

REPORT INFORMATION
  Report Type: Spontaneous
  Country: US (occurrence: US)
  Receive Date: 20150804
  Receipt Date: 20150917
  Transmission Date: 20151125
  Serious: Yes (Death, Hospitalization)
  Sender: FDA-Public Use
  Company Number: US-PFIZER INC-2015256561

PATIENT
  Age: 59 Year
  Sex: Female

DRUGS (1)
  1. VFEND [Suspect]
     Active Substance: VORICONAZOLE
     Indication: PNEUMONITIS
     Dosage: 200 MG, 2X/DAY
     Dates: start: 201504, end: 20150727

REACTIONS (2)
  - Head injury [Fatal]
  - Product use issue [Unknown]
